FAERS Safety Report 9097540 (Version 1)
Quarter: 2013Q1

REPORT INFORMATION
  Report Type: Spontaneous
  Country: US (occurrence: US)
  Receive Date: 20130212
  Receipt Date: 20130212
  Transmission Date: 20140127
  Serious: No
  Sender: FDA-Public Use
  Company Number: US-PFIZER INC-2013052053

PATIENT
  Sex: Female
  Weight: 96.15 kg

DRUGS (3)
  1. NEURONTIN [Suspect]
     Indication: BACK DISORDER
     Dosage: 800 MG, 2X/DAY
  2. NEURONTIN [Suspect]
     Indication: SPINAL DISORDER
  3. VALIUM [Concomitant]
     Indication: NERVOUS SYSTEM DISORDER
     Dosage: 5 MG, 1X/DAY

REACTIONS (1)
  - Angiopathy [Unknown]
